FAERS Safety Report 24464580 (Version 1)
Quarter: 2024Q4

REPORT INFORMATION
  Report Type: Report from Study
  Country: US (occurrence: US)
  Receive Date: 20241018
  Receipt Date: 20241018
  Transmission Date: 20250115
  Serious: No
  Sender: ROCHE
  Company Number: US-ROCHE-3511128

PATIENT
  Age: 65 Year
  Sex: Female
  Weight: 67.13 kg

DRUGS (5)
  1. XOLAIR [Suspect]
     Active Substance: OMALIZUMAB
     Indication: Idiopathic urticaria
     Dosage: LAST INJECTION DATE: 24/OCT/2022, 21/NOV/2022
     Route: 058
  2. XOLAIR [Suspect]
     Active Substance: OMALIZUMAB
  3. XYZAL [Concomitant]
     Active Substance: LEVOCETIRIZINE DIHYDROCHLORIDE
  4. ALBUTEROL [Concomitant]
     Active Substance: ALBUTEROL
  5. OLOPATADINE [Concomitant]
     Active Substance: OLOPATADINE

REACTIONS (3)
  - COVID-19 [Unknown]
  - Gastrointestinal disorder [Unknown]
  - Product dose omission issue [Unknown]
